FAERS Safety Report 22123177 (Version 1)
Quarter: 2023Q1

REPORT INFORMATION
  Report Type: Spontaneous
  Country: US (occurrence: US)
  Receive Date: 20230322
  Receipt Date: 20230322
  Transmission Date: 20230418
  Serious: No
  Sender: FDA-Public Use
  Company Number: US-ASCENDIS PHARMA-2023US001542

PATIENT

DRUGS (6)
  1. SKYTROFA [Suspect]
     Active Substance: LONAPEGSOMATROPIN-TCGD
     Indication: Growth hormone deficiency
     Dosage: 7.6 MILLIGRAM, WEEKLY
     Route: 058
     Dates: start: 2021, end: 2022
  2. SKYTROFA [Suspect]
     Active Substance: LONAPEGSOMATROPIN-TCGD
     Dosage: 9.1 MILLIGRAM, WEEKLY
     Route: 058
     Dates: start: 20220601, end: 20230121
  3. LEVOTHYROXINE [Concomitant]
     Active Substance: LEVOTHYROXINE
     Indication: Hypopituitarism
     Dosage: 50 UNK, QD
     Route: 048
     Dates: start: 20211021
  4. LEVOTHYROXINE [Concomitant]
     Active Substance: LEVOTHYROXINE
     Indication: Hypothyroidism
  5. ESTROGENS [Concomitant]
     Active Substance: ESTROGENS
     Indication: Hypopituitarism
     Dosage: 6.23 MICROGRAM, TWICE WEEKLY
     Route: 062
     Dates: start: 20220411
  6. ESTROGENS [Concomitant]
     Active Substance: ESTROGENS
     Indication: Hypogonadism

REACTIONS (5)
  - Abdominal mass [Not Recovered/Not Resolved]
  - Discomfort [Not Recovered/Not Resolved]
  - Emotional distress [Not Recovered/Not Resolved]
  - Fat tissue increased [Not Recovered/Not Resolved]
  - Hepatic steatosis [Not Recovered/Not Resolved]

NARRATIVE: CASE EVENT DATE: 20220101
